FAERS Safety Report 5294760-8 (Version None)
Quarter: 2007Q2

REPORT INFORMATION
  Report Type: 
  Country: None (occurrence: None)
  Receive Date: 20070409
  Receipt Date: 20070409
  Transmission Date: 20071010
  Serious: Yes (Other)
  Sender: FDA-Public Use
  Company Number: None

PATIENT
  Age: 30 Year
  Sex: Female
  Weight: 88 kg

DRUGS (7)
  1. KALETRA [Suspect]
     Indication: HIV INFECTION
     Dosage: 3 CAPSULES  BID  ORAL
     Route: 048
     Dates: start: 20060413
  2. TENOFOVIR/EMTRICITABINE [Suspect]
     Indication: HIV INFECTION
     Dosage: 1 CAPSULE  QD  ORAL
     Route: 048
     Dates: start: 20060413
  3. LAMIVUDINE + ZIDOVUDINE [Suspect]
     Dosage: 1 TABLET   BID  ORAL
     Route: 048
     Dates: start: 20070316, end: 20070323
  4. TENOFOVIR/EMTRICITABINE [Suspect]
     Dosage: 1 CAPSULE QD ORALLY
     Route: 048
     Dates: start: 20070323
  5. VITAMIN B COMPLETE [Concomitant]
  6. ASCORBIC ACID [Concomitant]
  7. STOP ITCH CREAM [Concomitant]

REACTIONS (4)
  - ABORTION SPONTANEOUS [None]
  - DRUG EXPOSURE BEFORE PREGNANCY [None]
  - DRUG EXPOSURE DURING PREGNANCY [None]
  - PREGNANCY [None]
